FAERS Safety Report 22394141 (Version 2)
Quarter: 2023Q4

REPORT INFORMATION
  Report Type: Report from Study
  Country: CA (occurrence: CA)
  Receive Date: 20230601
  Receipt Date: 20231221
  Transmission Date: 20240109
  Serious: Yes (Other)
  Sender: FDA-Public Use
  Company Number: CA-SAMSUNG BIOEPIS-SB-2023-14580

PATIENT
  Age: 20 Year
  Sex: Male

DRUGS (2)
  1. RENFLEXIS [Suspect]
     Active Substance: INFLIXIMAB-ABDA
     Indication: Colitis ulcerative
     Route: 042
     Dates: start: 20211125
  2. INFLUENZA VIRUS VACCINE [Concomitant]
     Active Substance: INFLUENZA VIRUS VACCINE
     Indication: Product used for unknown indication
     Dosage: UNKNOWN
     Route: 065
     Dates: start: 20231113

REACTIONS (7)
  - Vertigo [Recovered/Resolved]
  - Infusion site extravasation [Recovered/Resolved]
  - Syncope [Unknown]
  - Pallor [Recovered/Resolved]
  - Blood pressure decreased [Unknown]
  - Heart rate decreased [Unknown]
  - Product use issue [Unknown]

NARRATIVE: CASE EVENT DATE: 20230215
